FAERS Safety Report 24570635 (Version 2)
Quarter: 2024Q4

REPORT INFORMATION
  Report Type: Report from Study
  Country: ZA (occurrence: ZA)
  Receive Date: 20241031
  Receipt Date: 20241031
  Transmission Date: 20250114
  Serious: Yes (Death, Other)
  Sender: ALEXION PHARMACEUTICALS
  Company Number: ZA-AstraZeneca-CH-00726220A

PATIENT

DRUGS (16)
  1. DAPAGLIFLOZIN [Suspect]
     Active Substance: DAPAGLIFLOZIN
     Indication: Diabetes mellitus
     Dosage: UNK
  2. DAPAGLIFLOZIN [Suspect]
     Active Substance: DAPAGLIFLOZIN
     Dosage: UNK
  3. DAPAGLIFLOZIN [Suspect]
     Active Substance: DAPAGLIFLOZIN
     Dosage: UNK
  4. DAPAGLIFLOZIN [Suspect]
     Active Substance: DAPAGLIFLOZIN
     Dosage: UNK
  5. SPIRONOLACTONE [Suspect]
     Active Substance: SPIRONOLACTONE
     Indication: Hypertension
  6. SPIRONOLACTONE [Suspect]
     Active Substance: SPIRONOLACTONE
  7. SPIRONOLACTONE [Suspect]
     Active Substance: SPIRONOLACTONE
  8. SPIRONOLACTONE [Suspect]
     Active Substance: SPIRONOLACTONE
  9. ATORVASTATIN [Concomitant]
     Active Substance: ATORVASTATIN
     Indication: Blood cholesterol
  10. ATORVASTATIN [Concomitant]
     Active Substance: ATORVASTATIN
  11. GLUCOPHAGE [Concomitant]
     Active Substance: METFORMIN HYDROCHLORIDE
     Indication: Diabetes mellitus
  12. GLUCOPHAGE [Concomitant]
     Active Substance: METFORMIN HYDROCHLORIDE
  13. ECOTRIN [Concomitant]
     Active Substance: ASPIRIN
     Indication: Coagulopathy
  14. ECOTRIN [Concomitant]
     Active Substance: ASPIRIN
  15. PERINDOPRIL [Concomitant]
     Active Substance: PERINDOPRIL
     Indication: Hypertension
     Dosage: 25 MILLIGRAM
  16. PERINDOPRIL [Concomitant]
     Active Substance: PERINDOPRIL
     Dosage: 25 MILLIGRAM

REACTIONS (1)
  - Death [Fatal]
